FAERS Safety Report 19643670 (Version 3)
Quarter: 2021Q3

REPORT INFORMATION
  Report Type: Spontaneous
  Country: ES (occurrence: ES)
  Receive Date: 20210731
  Receipt Date: 20210823
  Transmission Date: 20211014
  Serious: Yes (Other)
  Sender: FDA-Public Use
  Company Number: NVSC2021ES164005

PATIENT
  Age: 68 Year
  Sex: Female
  Weight: 50 kg

DRUGS (5)
  1. DUODOPA [Suspect]
     Active Substance: CARBIDOPA\LEVODOPA
     Dosage: CONTINUOUS AND EXTRA DOSE REDUCED.
     Route: 050
     Dates: start: 20210709
  2. ROPINIROLE. [Suspect]
     Active Substance: ROPINIROLE
     Indication: PARKINSON^S DISEASE
     Dosage: 8 MG, Q24H
     Route: 048
     Dates: end: 20210708
  3. ROPINIROLE. [Suspect]
     Active Substance: ROPINIROLE
     Dosage: 6 MG, Q24H
     Route: 048
     Dates: start: 20210709, end: 20210715
  4. QUETIAPINE. [Concomitant]
     Active Substance: QUETIAPINE
     Indication: PRODUCT USED FOR UNKNOWN INDICATION
     Dosage: UNK
     Route: 065
  5. DUODOPA [Suspect]
     Active Substance: CARBIDOPA\LEVODOPA
     Indication: PARKINSON^S DISEASE
     Dosage: UNK
     Route: 050
     Dates: start: 20181004, end: 20210709

REACTIONS (4)
  - Fall [Unknown]
  - Suicide attempt [Recovered/Resolved]
  - Aggression [Recovered/Resolved]
  - Obsessive-compulsive disorder [Recovered/Resolved]

NARRATIVE: CASE EVENT DATE: 20210706
